FAERS Safety Report 4823134-6 (Version None)
Quarter: 2005Q4

REPORT INFORMATION
  Report Type: 
  Country: None (occurrence: None)
  Receive Date: 20051108
  Receipt Date: 20051024
  Transmission Date: 20060501
  Serious: Yes (Hospitalization)
  Sender: FDA-Public Use
  Company Number: JP-MERCK-0510USA08727

PATIENT
  Age: 84 Year
  Sex: Female

DRUGS (3)
  1. FOSAMAX [Suspect]
     Indication: OSTEOPOROSIS
     Route: 048
     Dates: start: 20050601, end: 20051016
  2. FOSAMAX [Suspect]
     Route: 048
     Dates: start: 20010101
  3. DIDRONEL [Concomitant]
     Indication: OSTEOPOROSIS
     Route: 048
     Dates: start: 19990101

REACTIONS (5)
  - ANAEMIA [None]
  - MYELODYSPLASTIC SYNDROME [None]
  - PLATELET COUNT DECREASED [None]
  - RED BLOOD CELL COUNT DECREASED [None]
  - WHITE BLOOD CELL COUNT DECREASED [None]
